FAERS Safety Report 6934790-0 (Version None)
Quarter: 2010Q3

REPORT INFORMATION
  Report Type: 
  Country: None (occurrence: None)
  Receive Date: 20100820
  Receipt Date: 20100805
  Transmission Date: 20110219
  Serious: Yes (Disabling, Other)
  Sender: FDA-Public Use
  Company Number: PHEH2009US08806

PATIENT
  Sex: Female
  Weight: 90.703 kg

DRUGS (8)
  1. RECLAST [Suspect]
     Indication: OSTEOPOROSIS
     Dosage: UNK
     Route: 042
     Dates: start: 20090729, end: 20090729
  2. PERCOCET [Concomitant]
     Indication: COMPLEX REGIONAL PAIN SYNDROME
     Dosage: 7.5 MG, TID
  3. KLONOPIN [Concomitant]
     Indication: COMPLEX REGIONAL PAIN SYNDROME
     Dosage: 1 MG, PRN
  4. ALLEGRA [Concomitant]
     Dosage: 180 MG, QD
     Route: 048
  5. CELEBREX [Concomitant]
     Dosage: 200 MG, QD
     Route: 048
  6. NEXIUM [Concomitant]
     Dosage: 40 MG, QD
     Route: 048
  7. ATENOLOL [Concomitant]
     Dosage: 50 MG, QD
     Route: 048
  8. PROZAC [Concomitant]
     Dosage: 40 MG, QD
     Route: 048

REACTIONS (16)
  - ARTHRALGIA [None]
  - BACK PAIN [None]
  - BONE PAIN [None]
  - CHEST PAIN [None]
  - DIZZINESS [None]
  - DYSARTHRIA [None]
  - FATIGUE [None]
  - FEELING ABNORMAL [None]
  - HEADACHE [None]
  - INFLUENZA LIKE ILLNESS [None]
  - JOINT SWELLING [None]
  - MYALGIA [None]
  - NECK PAIN [None]
  - PYREXIA [None]
  - URINE ABNORMALITY [None]
  - URINE ODOUR ABNORMAL [None]
